FAERS Safety Report 9772858 (Version 2)
Quarter: 2014Q1

REPORT INFORMATION
  Report Type: Spontaneous
  Country: US (occurrence: US)
  Receive Date: 20131219
  Receipt Date: 20140103
  Transmission Date: 20141002
  Serious: No
  Sender: FDA-Public Use
  Company Number: US-PFIZER INC-2013361359

PATIENT
  Age: 59 Year
  Sex: Female

DRUGS (21)
  1. SKELAXIN [Suspect]
     Dosage: UNK
  2. DAYPRO [Suspect]
     Dosage: UNK
  3. DETROL LA [Suspect]
     Dosage: UNK
  4. VISTARIL [Suspect]
     Dosage: UNK
  5. LIPITOR [Suspect]
     Dosage: UNK
  6. TRAMADOL HCL [Suspect]
     Dosage: UNK
  7. ZOLPIDEM TARTRATE [Suspect]
     Dosage: UNK
  8. REQUIP [Suspect]
     Dosage: UNK
  9. ERYTHROMYCIN [Suspect]
     Dosage: UNK
  10. VICODIN [Suspect]
     Dosage: UNK
  11. CODEINE [Suspect]
     Dosage: UNK
  12. MEPERIDINE [Suspect]
     Dosage: UNK
  13. FLEXERIL [Suspect]
     Dosage: UNK
  14. DARVOCET-N [Suspect]
     Dosage: UNK
  15. PERIOSTAT [Suspect]
     Dosage: UNK
  16. DITROPAN [Suspect]
     Dosage: UNK
  17. KENALOG [Suspect]
     Dosage: UNK
  18. ZOCOR [Suspect]
     Dosage: UNK
  19. WELCHOL [Suspect]
     Dosage: UNK
  20. BACTRIM [Suspect]
     Dosage: UNK
  21. PERCOCET [Suspect]
     Dosage: UNK

REACTIONS (1)
  - Drug hypersensitivity [Unknown]
